FAERS Safety Report 4998505-8 (Version None)
Quarter: 2006Q2

REPORT INFORMATION
  Report Type: 
  Country: None (occurrence: None)
  Receive Date: 20060508
  Receipt Date: 20060424
  Transmission Date: 20061013
  Serious: Yes (Other)
  Sender: FDA-Public Use
  Company Number: 2006054808

PATIENT
  Age: 72 Year
  Sex: Male

DRUGS (1)
  1. VFEND [Suspect]
     Indication: ILL-DEFINED DISORDER
     Dosage: 200 MG ORAL
     Route: 048
     Dates: start: 20060315

REACTIONS (3)
  - INAPPROPRIATE ANTIDIURETIC HORMONE SECRETION [None]
  - LIVER DISORDER [None]
  - LOSS OF CONSCIOUSNESS [None]
